FAERS Safety Report 22967920 (Version 2)
Quarter: 2024Q4

REPORT INFORMATION
  Report Type: Spontaneous
  Country: SI (occurrence: SI)
  Receive Date: 20230921
  Receipt Date: 20241028
  Transmission Date: 20250114
  Serious: Yes (Other)
  Sender: MYLAN
  Company Number: SI-SANDOZ-SDZ2023SI021028

PATIENT
  Age: 63 Year
  Sex: Female

DRUGS (12)
  1. ZOLEDRONIC ACID [Suspect]
     Active Substance: ZOLEDRONIC ACID
     Indication: Product used for unknown indication
     Dosage: 4 MILLIGRAM, Q3MONTHS
     Route: 065
     Dates: start: 202305, end: 202308
  2. ZOLEDRONIC ACID [Suspect]
     Active Substance: ZOLEDRONIC ACID
     Dosage: 4 MILLIGRAM, Q3MONTHS
     Route: 065
     Dates: start: 202211, end: 202304
  3. ZOLEDRONIC ACID [Suspect]
     Active Substance: ZOLEDRONIC ACID
     Dosage: 4 MILLIGRAM, Q3MONTHS
     Route: 065
     Dates: start: 201909, end: 202003
  4. ZOLEDRONIC ACID [Suspect]
     Active Substance: ZOLEDRONIC ACID
     Dosage: 4 MILLIGRAM, Q3MONTHS
     Route: 065
     Dates: start: 202003, end: 202012
  5. ZOLEDRONIC ACID [Suspect]
     Active Substance: ZOLEDRONIC ACID
     Dosage: 4 MILLIGRAM, Q3MONTHS
     Route: 065
     Dates: start: 202012, end: 202211
  6. FULVESTRANT [Suspect]
     Active Substance: FULVESTRANT
     Indication: Product used for unknown indication
     Dosage: 500 MG, Q4W , Q28D
     Route: 065
     Dates: start: 201904, end: 201909
  7. CAPECITABINE [Suspect]
     Active Substance: CAPECITABINE
     Indication: Product used for unknown indication
     Dosage: 1800 MG, Q12H (FOR 14 DAYS)
     Route: 065
     Dates: start: 201909, end: 202003
  8. EVEROLIMUS [Suspect]
     Active Substance: EVEROLIMUS
     Indication: Product used for unknown indication
     Dosage: EVEROLIMUS 10MG/D;EXEMESTANE 25MG/D
     Route: 065
     Dates: start: 202003, end: 202012
  9. OLAPARIB [Suspect]
     Active Substance: OLAPARIB
     Indication: Product used for unknown indication
     Dosage: 300 MG, Q12H
     Route: 065
     Dates: start: 202012, end: 202211
  10. DOXORUBICIN [Suspect]
     Active Substance: DOXORUBICIN
     Indication: Product used for unknown indication
     Dosage: UNK, Q3W
     Route: 065
     Dates: start: 202305, end: 202308
  11. EXEMESTANE [Suspect]
     Active Substance: EXEMESTANE
     Indication: Product used for unknown indication
     Dosage: 25 MILLIGRAM, QD
     Route: 065
     Dates: start: 202003, end: 202012
  12. EXEMESTANE [Suspect]
     Active Substance: EXEMESTANE

REACTIONS (10)
  - Disease progression [Unknown]
  - Nausea [Unknown]
  - Fatigue [Unknown]
  - Pain [Unknown]
  - Anaemia [Unknown]
  - Dyspnoea [Unknown]
  - Stomatitis [Unknown]
  - Vomiting [Unknown]
  - Bone pain [Unknown]
  - Therapeutic product effect incomplete [Unknown]
